FAERS Safety Report 10891189 (Version 1)
Quarter: 2015Q1

REPORT INFORMATION
  Report Type: Report from Study
  Country: US (occurrence: US)
  Receive Date: 20150305
  Receipt Date: 20150305
  Transmission Date: 20150721
  Serious: Yes (Hospitalization)
  Sender: FDA-Public Use
  Company Number: US-ACTELION-A-US2015-113890

PATIENT
  Age: 32 Year
  Sex: Female

DRUGS (1)
  1. MACITENTAN [Suspect]
     Active Substance: MACITENTAN
     Indication: SICKLE CELL ANAEMIA
     Dosage: 10 MG, UNK
     Route: 048

REACTIONS (1)
  - Cervix cerclage procedure [Unknown]
